FAERS Safety Report 20481701 (Version 5)
Quarter: 2022Q1

REPORT INFORMATION
  Report Type: Spontaneous
  Country: US (occurrence: US)
  Receive Date: 20220216
  Receipt Date: 20220316
  Transmission Date: 20220423
  Serious: Yes (Life-Threatening, Hospitalization, Other)
  Sender: FDA-Public Use
  Company Number: US-NOVARTISPH-NVSC2022US029032

PATIENT
  Age: 70 Year
  Sex: Male
  Weight: 126.98 kg

DRUGS (8)
  1. CLOFAZIMINE [Suspect]
     Active Substance: CLOFAZIMINE
     Indication: Mycobacterium abscessus infection
     Dosage: 50 MG, QD
     Route: 048
     Dates: start: 20211220, end: 20220201
  2. CLOFAZIMINE [Suspect]
     Active Substance: CLOFAZIMINE
     Dosage: 50 MG, QD
     Route: 048
     Dates: start: 20211220
  3. AMIKACIN [Concomitant]
     Active Substance: AMIKACIN
     Indication: Mycobacterium abscessus infection
     Dosage: 200 MG, QW
     Route: 042
     Dates: start: 20211028, end: 20220201
  4. AMIKACIN [Concomitant]
     Active Substance: AMIKACIN
     Dosage: 800 MG, QW
     Route: 042
     Dates: start: 20211026, end: 20220206
  5. AMIKACIN [Concomitant]
     Active Substance: AMIKACIN
     Dosage: 800 MG, QW
     Route: 042
     Dates: start: 20211026, end: 20220216
  6. OMADACYCLINE [Concomitant]
     Active Substance: OMADACYCLINE
     Indication: Mycobacterium abscessus infection
     Dosage: 200 MG, QD
     Route: 048
     Dates: start: 20211120, end: 20220201
  7. OMADACYCLINE [Concomitant]
     Active Substance: OMADACYCLINE
     Dosage: 300 MG, QD
     Route: 048
     Dates: start: 20211120, end: 20220206
  8. OMADACYCLINE [Concomitant]
     Active Substance: OMADACYCLINE
     Dosage: 300 MG, QD
     Route: 048
     Dates: start: 20211120, end: 20220223

REACTIONS (6)
  - Gastric perforation [Recovered/Resolved]
  - Gastric ulcer [Not Recovered/Not Resolved]
  - Gastrointestinal haemorrhage [Unknown]
  - Melaena [Not Recovered/Not Resolved]
  - Anaemia [Not Recovered/Not Resolved]
  - Abdominal pain [Unknown]

NARRATIVE: CASE EVENT DATE: 20220102
